FAERS Safety Report 20003910 (Version 5)
Quarter: 2022Q1

REPORT INFORMATION
  Report Type: Report from Study
  Country: CA (occurrence: CA)
  Receive Date: 20211027
  Receipt Date: 20220308
  Transmission Date: 20220423
  Serious: Yes (Other)
  Sender: FDA-Public Use
  Company Number: CA-OTSUKA-2021_028993

PATIENT
  Age: 70 Year
  Sex: Male

DRUGS (2)
  1. CEDAZURIDINE\DECITABINE [Suspect]
     Active Substance: CEDAZURIDINE\DECITABINE
     Indication: Chronic myelomonocytic leukaemia
     Dosage: UNK (35 MG DECITABINE AND 100 MG CEDAZURIDINE) FIVE DOSE, 4 PILLS/28 DAY CYCLE
     Route: 048
     Dates: start: 20210811
  2. CEDAZURIDINE\DECITABINE [Suspect]
     Active Substance: CEDAZURIDINE\DECITABINE
     Dosage: UNK (35 MG DECITABINE AND 100 MG CEDAZURIDINE) DOWN TO FOUR DOSES
     Route: 065

REACTIONS (9)
  - Platelet transfusion [Unknown]
  - Cytopenia [Unknown]
  - Chills [Unknown]
  - Biopsy bone marrow [Unknown]
  - Eastern Cooperative Oncology Group performance status worsened [Unknown]
  - General physical health deterioration [Unknown]
  - Contusion [Unknown]
  - Fatigue [Unknown]
  - Therapy interrupted [Unknown]

NARRATIVE: CASE EVENT DATE: 20210813
